FAERS Safety Report 6867622-X (Version None)
Quarter: 2010Q3

REPORT INFORMATION
  Report Type: 
  Country: None (occurrence: None)
  Receive Date: 20100722
  Receipt Date: 20090908
  Transmission Date: 20110219
  Serious: No
  Sender: FDA-Public Use
  Company Number: US-BAUSCH-2009BL004547

PATIENT
  Age: 70 Year
  Sex: Female

DRUGS (3)
  1. OPCON-A [Suspect]
     Indication: DRY EYE
     Route: 047
     Dates: start: 20090906, end: 20090907
  2. OPCON-A [Suspect]
     Indication: EYE PRURITUS
     Route: 047
     Dates: start: 20090906, end: 20090907
  3. THERA TEARS [Concomitant]
     Indication: DRY EYE

REACTIONS (1)
  - EYE IRRITATION [None]
